FAERS Safety Report 25989662 (Version 1)
Quarter: 2025Q4

REPORT INFORMATION
  Report Type: Spontaneous
  Country: US (occurrence: US)
  Receive Date: 20251103
  Receipt Date: 20251103
  Transmission Date: 20260118
  Serious: No
  Sender: BAYER HEALTHCARE PHARMACEUTICALS INC.
  Company Number: US-BAYER-2025A138438

PATIENT
  Sex: Female

DRUGS (1)
  1. MIRENA [Suspect]
     Active Substance: LEVONORGESTREL
     Dosage: 20?G/DAY
     Route: 015
     Dates: start: 202103, end: 202201

REACTIONS (5)
  - Device expulsion [Recovered/Resolved]
  - Heavy menstrual bleeding [None]
  - Uterine leiomyoma [None]
  - Dysmenorrhoea [None]
  - Genital haemorrhage [None]

NARRATIVE: CASE EVENT DATE: 20210101
